FAERS Safety Report 15476113 (Version 1)
Quarter: 2018Q4

REPORT INFORMATION
  Report Type: Spontaneous
  Country: ES (occurrence: ES)
  Receive Date: 20181009
  Receipt Date: 20181009
  Transmission Date: 20190205
  Serious: Yes (Hospitalization)
  Sender: FDA-Public Use
  Company Number: PHHY2018ES113518

PATIENT
  Age: 64 Year
  Sex: Female

DRUGS (2)
  1. DEXAMETHASONE. [Suspect]
     Active Substance: DEXAMETHASONE
     Indication: PLASMA CELL MYELOMA
     Route: 065
  2. LENALIDOMIDE [Suspect]
     Active Substance: LENALIDOMIDE
     Indication: PLASMA CELL MYELOMA
     Route: 065

REACTIONS (12)
  - Product use in unapproved indication [Unknown]
  - Waxy flexibility [Recovering/Resolving]
  - Bradykinesia [Recovering/Resolving]
  - Prion disease [Recovering/Resolving]
  - Cogwheel rigidity [Recovering/Resolving]
  - Toxicity to various agents [Recovering/Resolving]
  - Gait disturbance [Recovering/Resolving]
  - Dystonia [Recovering/Resolving]
  - Amnesia [Recovering/Resolving]
  - Agitation [Recovering/Resolving]
  - Hallucination, visual [Recovering/Resolving]
  - Confusional state [Recovering/Resolving]
